FAERS Safety Report 4417243-3 (Version None)
Quarter: 2004Q2

REPORT INFORMATION
  Report Type: 
  Country: None (occurrence: None)
  Receive Date: 20040629
  Receipt Date: 20031120
  Transmission Date: 20050107
  Serious: Yes (Death, Other)
  Sender: FDA-Public Use
  Company Number: US_031199053

PATIENT
  Age: 51 Year
  Sex: Male

DRUGS (1)
  1. HUMALOG [Suspect]
     Indication: DIABETES MELLITUS
     Dates: start: 20010101

REACTIONS (3)
  - GASTROINTESTINAL HAEMORRHAGE [None]
  - METABOLIC ACIDOSIS [None]
  - RENAL FAILURE [None]
